FAERS Safety Report 19152849 (Version 1)
Quarter: 2021Q2

REPORT INFORMATION
  Report Type: Spontaneous
  Country: US (occurrence: US)
  Receive Date: 20210417
  Receipt Date: 20210417
  Transmission Date: 20210717
  Serious: No
  Sender: FDA-Public Use
  Company Number: None

PATIENT
  Age: 53 Year
  Sex: Male
  Weight: 74.25 kg

DRUGS (1)
  1. ASSURED CHEWABLE LOW DOSE ASPIRIN 81MG CHEWABLE TABLETS [Suspect]
     Active Substance: ASPIRIN
     Dosage: ?          QUANTITY:1 TABLET(S);?
     Dates: start: 20210417, end: 20210417

REACTIONS (2)
  - Product taste abnormal [None]
  - Product quality issue [None]

NARRATIVE: CASE EVENT DATE: 20210417
